FAERS Safety Report 11539277 (Version 1)
Quarter: 2015Q3

REPORT INFORMATION
  Report Type: Spontaneous
  Country: US (occurrence: US)
  Receive Date: 20150923
  Receipt Date: 20150923
  Transmission Date: 20151125
  Serious: No
  Sender: FDA-Public Use
  Company Number: US-PFIZER INC-2015303728

PATIENT
  Age: 61 Year
  Sex: Male
  Weight: 64 kg

DRUGS (5)
  1. FERROUS [Concomitant]
     Active Substance: FERROUS SULFATE\GLYCINE
     Indication: MINERAL SUPPLEMENTATION
     Dosage: UNK, 1X/DAY (STARTED TAKING 7 MONTHS AGO)
  2. SUTENT [Suspect]
     Active Substance: SUNITINIB MALATE
     Indication: NEOPLASM MALIGNANT
     Dosage: 50MG ONCE A DAY CAPSULE BY MOUTH, TAKE FOR 30DAYS AND OFF 14DAYS
     Route: 048
     Dates: start: 201411
  3. NEXIUM [Concomitant]
     Active Substance: ESOMEPRAZOLE MAGNESIUM
     Indication: GASTROOESOPHAGEAL REFLUX DISEASE
     Dosage: 40 MG, AS NEEDED,
  4. NORVASC [Concomitant]
     Active Substance: AMLODIPINE BESYLATE
     Indication: BLOOD PRESSURE ABNORMAL
     Dosage: 10 MG, 1X/DAY
  5. DOXASIN [Concomitant]
     Indication: BLOOD PRESSURE ABNORMAL
     Dosage: 8 MG, UNK

REACTIONS (4)
  - Platelet count decreased [Unknown]
  - Decreased appetite [Recovering/Resolving]
  - Blister [Recovered/Resolved]
  - Weight decreased [Unknown]

NARRATIVE: CASE EVENT DATE: 201412
